FAERS Safety Report 14751392 (Version 1)
Quarter: 2018Q2

REPORT INFORMATION
  Report Type: Spontaneous
  Country: US (occurrence: US)
  Receive Date: 20180406
  Receipt Date: 20180406
  Transmission Date: 20180711
  Serious: Yes (Hospitalization)
  Sender: FDA-Public Use
  Company Number: None

PATIENT
  Age: 62 Year
  Sex: Female
  Weight: 74.9 kg

DRUGS (4)
  1. XELODA [Suspect]
     Active Substance: CAPECITABINE
     Dates: end: 20180330
  2. LEUCOVORIN CALCIUM. [Suspect]
     Active Substance: LEUCOVORIN CALCIUM
     Dates: end: 20180131
  3. 5-FLUOROURACIL (5-FU) [Suspect]
     Active Substance: FLUOROURACIL
     Dates: end: 20180113
  4. ELOXATIN [Suspect]
     Active Substance: OXALIPLATIN
     Dates: end: 20180131

REACTIONS (4)
  - Blood creatinine increased [None]
  - Prostatomegaly [None]
  - Hydronephrosis [None]
  - Bladder outlet obstruction [None]

NARRATIVE: CASE EVENT DATE: 20180402
